FAERS Safety Report 7679491-9 (Version None)
Quarter: 2011Q3

REPORT INFORMATION
  Report Type: 
  Country: None (occurrence: None)
  Receive Date: 20110812
  Receipt Date: 20110812
  Transmission Date: 20111222
  Serious: Yes (Hospitalization)
  Sender: FDA-Public Use
  Company Number: None

PATIENT
  Sex: Male
  Weight: 80.285 kg

DRUGS (4)
  1. NORVASC [Concomitant]
  2. PRADAXA [Suspect]
     Indication: ATRIAL FIBRILLATION
     Dates: start: 20110720, end: 20110727
  3. METROPOLOL [Concomitant]
  4. LISINOPRIL [Concomitant]

REACTIONS (2)
  - URINARY RETENTION [None]
  - CONSTIPATION [None]
